FAERS Safety Report 13855060 (Version 3)
Quarter: 2017Q3

REPORT INFORMATION
  Report Type: Report from Study
  Country: US (occurrence: US)
  Receive Date: 20170810
  Receipt Date: 20170918
  Transmission Date: 20171127
  Serious: Yes (Other)
  Sender: FDA-Public Use
  Company Number: US-PFIZER INC-2017313884

PATIENT
  Age: 60 Year
  Sex: Female

DRUGS (2)
  1. IBRANCE [Suspect]
     Active Substance: PALBOCICLIB
     Dosage: 100 MG, CYCLIC (DAILY, 3 WEEKS ON/ 1 WEEK OFF)
     Route: 048
     Dates: start: 20170819
  2. IBRANCE [Suspect]
     Active Substance: PALBOCICLIB
     Indication: BREAST CANCER
     Dosage: 125 MG, CYCLIC (DAILY, 3 WEEKS ON/1 WEEK OFF)
     Route: 048
     Dates: start: 20170712, end: 20170726

REACTIONS (11)
  - Rash [Unknown]
  - Dissociation [Unknown]
  - Musculoskeletal pain [Unknown]
  - Sleep disorder [Unknown]
  - Fatigue [Unknown]
  - Nausea [Unknown]
  - Bone pain [Unknown]
  - Stress [Unknown]
  - Depression [Unknown]
  - Bone marrow failure [Unknown]
  - Drug dose omission [Unknown]

NARRATIVE: CASE EVENT DATE: 2017
